FAERS Safety Report 20353432 (Version 1)
Quarter: 2022Q1

REPORT INFORMATION
  Report Type: Spontaneous
  Country: JP (occurrence: JP)
  Receive Date: 20220119
  Receipt Date: 20220119
  Transmission Date: 20220423
  Serious: Yes (Hospitalization)
  Sender: FDA-Public Use
  Company Number: JP-NOVARTISPH-NVSJ2022JP001015

PATIENT
  Sex: Female

DRUGS (1)
  1. AMLODIPINE [Suspect]
     Active Substance: AMLODIPINE BESYLATE
     Indication: Hypertension
     Dosage: 70 DOSAGE FORM
     Route: 048

REACTIONS (6)
  - Depressed level of consciousness [Unknown]
  - Mobility decreased [Unknown]
  - Hypotension [Recovering/Resolving]
  - Hyperglycaemia [Unknown]
  - Dizziness [Unknown]
  - Intentional overdose [Unknown]
